FAERS Safety Report 7589287-4 (Version None)
Quarter: 2011Q3

REPORT INFORMATION
  Report Type: 
  Country: None (occurrence: None)
  Receive Date: 20110705
  Receipt Date: 20110623
  Transmission Date: 20111222
  Serious: Yes (Other)
  Sender: FDA-Public Use
  Company Number: AU-JNJFOC-20110611605

PATIENT
  Sex: Female

DRUGS (2)
  1. MICONAZOLE [Suspect]
     Route: 061
  2. MICONAZOLE [Suspect]
     Indication: ONYCHOMYCOSIS
     Route: 061
     Dates: start: 20110602

REACTIONS (1)
  - VISUAL ACUITY REDUCED [None]
